FAERS Safety Report 23532826 (Version 1)
Quarter: 2024Q1

REPORT INFORMATION
  Report Type: Spontaneous
  Country: GB (occurrence: GB)
  Receive Date: 20240216
  Receipt Date: 20240216
  Transmission Date: 20240410
  Serious: Yes (Other)
  Sender: FDA-Public Use
  Company Number: GB-MYLANLABS-2023M1123883

PATIENT
  Age: 29 Year
  Sex: Male
  Weight: 81.5 kg

DRUGS (8)
  1. CLOZARIL [Suspect]
     Active Substance: CLOZAPINE
     Indication: Schizophrenia
     Dosage: 12.5 MILLIGRAM, HS
     Route: 048
     Dates: start: 20231018, end: 2023
  2. CLOZARIL [Suspect]
     Active Substance: CLOZAPINE
     Dosage: 100MG AM  200MG PM
     Route: 048
     Dates: start: 20231019, end: 20231117
  3. OMEPRAZOLE [Concomitant]
     Active Substance: OMEPRAZOLE
     Indication: Gastrointestinal disorder
     Dosage: 20 MILLIGRAM, QD
     Route: 048
     Dates: start: 20230930
  4. PROCYCLIDINE [Concomitant]
     Active Substance: PROCYCLIDINE
     Indication: Extrapyramidal disorder
     Dosage: 5 MILLIGRAM, BD-TDS
     Route: 048
     Dates: start: 20230913
  5. CLONAZEPAM [Concomitant]
     Active Substance: CLONAZEPAM
     Indication: Agitation
     Dosage: 0.5-1MG OD-TDS
     Route: 048
     Dates: start: 20230822
  6. VALPROATE SODIUM [Concomitant]
     Active Substance: VALPROATE SODIUM
     Indication: Affective disorder
     Dosage: 500-750MG
     Route: 048
     Dates: start: 20230905
  7. ZUCLOPENTHIXOL [Concomitant]
     Active Substance: ZUCLOPENTHIXOL
     Indication: Psychotic disorder
     Dosage: 25-75MG OD-BD
     Route: 048
     Dates: start: 20230822
  8. ZUCLOPENTHIXOL [Concomitant]
     Active Substance: ZUCLOPENTHIXOL
     Indication: Psychotic disorder
     Dosage: 200- 300MG, EVERY 2 WEEKS
     Route: 030
     Dates: start: 20230825, end: 20231012

REACTIONS (3)
  - Eosinophilia [Recovered/Resolved]
  - Neutrophil count increased [Recovered/Resolved]
  - White blood cell count increased [Recovered/Resolved]

NARRATIVE: CASE EVENT DATE: 20231101
